FAERS Safety Report 14357038 (Version 2)
Quarter: 2018Q1

REPORT INFORMATION
  Report Type: Spontaneous
  Country: ES (occurrence: ES)
  Receive Date: 20180105
  Receipt Date: 20180123
  Transmission Date: 20180509
  Serious: Yes (Congenital Anomaly, Other)
  Sender: FDA-Public Use
  Company Number: ES-BAUSCH-BL-2017-036038

PATIENT
  Age: 2 Day
  Sex: Male
  Weight: 2 kg

DRUGS (9)
  1. VINCRISTINA SULFATO [Suspect]
     Active Substance: VINCRISTINE SULFATE
     Indication: BURKITT^S LYMPHOMA
     Dosage: 1 CYCLICAL
     Route: 064
     Dates: start: 20170814, end: 20170926
  2. DOXORUBICINA [Suspect]
     Active Substance: DOXORUBICIN HYDROCHLORIDE
     Indication: BURKITT^S LYMPHOMA
     Dosage: 1 CYCLICAL
     Route: 064
     Dates: start: 20170814, end: 20170926
  3. METILPREDNISOLONA [Suspect]
     Active Substance: METHYLPREDNISOLONE
     Indication: BURKITT^S LYMPHOMA
     Dosage: 1 CYCLICAL
     Route: 064
     Dates: start: 20170814, end: 20170926
  4. CICLOFOSFAMIDA [Suspect]
     Active Substance: CYCLOPHOSPHAMIDE
     Indication: BURKITT^S LYMPHOMA
     Dosage: 1 CYCLICAL
     Route: 064
     Dates: start: 20170814, end: 20170926
  5. CITARABINA [Suspect]
     Active Substance: CYTARABINE
     Indication: BURKITT^S LYMPHOMA
     Dosage: 1 CYCLICAL
     Route: 064
     Dates: start: 20170814, end: 20170926
  6. PREDNISONA [Suspect]
     Active Substance: PREDNISONE
     Indication: BURKITT^S LYMPHOMA
     Dosage: IN TOTAL
     Route: 064
     Dates: start: 20170814, end: 20170926
  7. HYDROCORTISONE. [Suspect]
     Active Substance: HYDROCORTISONE
     Indication: BURKITT^S LYMPHOMA
     Dosage: 1 CYCLICAL
     Route: 064
     Dates: start: 20170814, end: 20170926
  8. METHOTREXATE (METHOTREXATE SODIUM) [Suspect]
     Active Substance: METHOTREXATE SODIUM
     Indication: BURKITT^S LYMPHOMA
     Dosage: 1 CYCLICAL
     Route: 064
     Dates: start: 20170814, end: 20170926
  9. RITUXIMAB. [Suspect]
     Active Substance: RITUXIMAB
     Indication: BURKITT^S LYMPHOMA
     Dosage: 1 CYCLICAL
     Route: 064
     Dates: start: 20170814, end: 20170926

REACTIONS (2)
  - Foetal exposure during pregnancy [Recovered/Resolved]
  - Congenital cardiovascular anomaly [Recovering/Resolving]

NARRATIVE: CASE EVENT DATE: 20170814
